FAERS Safety Report 7280760-5 (Version None)
Quarter: 2011Q1

REPORT INFORMATION
  Report Type: 
  Country: None (occurrence: None)
  Receive Date: 20110208
  Receipt Date: 20110204
  Transmission Date: 20110831
  Serious: Yes (Life-Threatening, Hospitalization)
  Sender: FDA-Public Use
  Company Number: FR-ABBOTT-11P-056-0702731-00

PATIENT
  Sex: Male

DRUGS (3)
  1. CLOPIDOGREL [Concomitant]
     Indication: PRODUCT USED FOR UNKNOWN INDICATION
  2. TARKA [Suspect]
     Indication: PRODUCT USED FOR UNKNOWN INDICATION
  3. ROSUVASTATINE [Concomitant]
     Indication: PRODUCT USED FOR UNKNOWN INDICATION

REACTIONS (2)
  - CARDIAC ARREST [None]
  - SINOATRIAL BLOCK [None]
